FAERS Safety Report 6309214-7 (Version None)
Quarter: 2009Q3

REPORT INFORMATION
  Report Type: 
  Country: None (occurrence: None)
  Receive Date: 20090814
  Receipt Date: 20090813
  Transmission Date: 20100115
  Serious: Yes (Death)
  Sender: FDA-Public Use
  Company Number: PT-PFIZER INC-2009233499

PATIENT

DRUGS (1)
  1. ARTHROTEC [Suspect]
     Indication: ARTHRALGIA

REACTIONS (2)
  - DEATH [None]
  - MALAISE [None]
